FAERS Safety Report 18115429 (Version 1)
Quarter: 2020Q3

REPORT INFORMATION
  Report Type: Spontaneous
  Country: CN (occurrence: CN)
  Receive Date: 20200805
  Receipt Date: 20200805
  Transmission Date: 20201103
  Serious: Yes (Other)
  Sender: FDA-Public Use
  Company Number: CN-PFIZER INC-2020292927

PATIENT
  Age: 39 Year
  Sex: Female

DRUGS (1)
  1. ZAVEDOS [Suspect]
     Active Substance: IDARUBICIN
     Indication: ACUTE LEUKAEMIA
     Dosage: 12.000 MG, 1X/DAY
     Route: 041
     Dates: start: 20200623, end: 20200625

REACTIONS (3)
  - Myelosuppression [Recovering/Resolving]
  - Herpes virus infection [Recovering/Resolving]
  - Pruritus [Recovering/Resolving]

NARRATIVE: CASE EVENT DATE: 20200702
